FAERS Safety Report 6207696-2 (Version None)
Quarter: 2009Q2

REPORT INFORMATION
  Report Type: 
  Country: None (occurrence: None)
  Receive Date: 20090528
  Receipt Date: 20090518
  Transmission Date: 20091009
  Serious: Yes (Hospitalization)
  Sender: FDA-Public Use
  Company Number: US-ABBOTT-09P-163-0574724-00

PATIENT
  Sex: Male
  Weight: 84.444 kg

DRUGS (1)
  1. HUMIRA [Suspect]
     Indication: PSORIASIS
     Route: 058
     Dates: start: 20070613, end: 20090422

REACTIONS (7)
  - CHILLS [None]
  - COUGH [None]
  - DRUG DOSE OMISSION [None]
  - NASOPHARYNGITIS [None]
  - PAIN IN EXTREMITY [None]
  - PYREXIA [None]
  - SNEEZING [None]
